FAERS Safety Report 26210090 (Version 1)
Quarter: 2025Q4

REPORT INFORMATION
  Report Type: Spontaneous
  Country: US (occurrence: US)
  Receive Date: 20251229
  Receipt Date: 20251229
  Transmission Date: 20260117
  Serious: Yes (Other)
  Sender: MYLAN
  Company Number: US-MYLANLABS-2025M1110761

PATIENT
  Sex: Male

DRUGS (8)
  1. FENTANYL [Suspect]
     Active Substance: FENTANYL
     Indication: Product used for unknown indication
     Dosage: 2 MILLIGRAM
  2. FENTANYL [Suspect]
     Active Substance: FENTANYL
     Dosage: 2 MILLIGRAM
     Route: 065
  3. FENTANYL [Suspect]
     Active Substance: FENTANYL
     Dosage: 2 MILLIGRAM
     Route: 065
  4. FENTANYL [Suspect]
     Active Substance: FENTANYL
     Dosage: 2 MILLIGRAM
  5. OXYCODONE [Suspect]
     Active Substance: OXYCODONE
     Indication: Product used for unknown indication
     Dosage: UNK
  6. OXYCODONE [Suspect]
     Active Substance: OXYCODONE
     Dosage: UNK
     Route: 065
  7. OXYCODONE [Suspect]
     Active Substance: OXYCODONE
     Dosage: UNK
     Route: 065
  8. OXYCODONE [Suspect]
     Active Substance: OXYCODONE
     Dosage: UNK

REACTIONS (2)
  - Toxicity to various agents [Unknown]
  - Victim of crime [Unknown]

NARRATIVE: CASE EVENT DATE: 20251001
